FAERS Safety Report 18778407 (Version 1)
Quarter: 2021Q1

REPORT INFORMATION
  Report Type: Report from Study
  Country: US (occurrence: US)
  Receive Date: 20210123
  Receipt Date: 20210123
  Transmission Date: 20210419
  Serious: Yes (Hospitalization)
  Sender: FDA-Public Use
  Company Number: US-TAKEDA-US201936515

PATIENT
  Age: 70 Year
  Sex: Female

DRUGS (40)
  1. GUAIFENESIN AC [Concomitant]
     Active Substance: CODEINE PHOSPHATE\GUAIFENESIN
     Indication: COUGH
     Dosage: UNK
     Route: 048
     Dates: start: 20180819, end: 20180802
  2. PREDNISOL [PREDNISOLONE SODIUM PHOSPHATE] [Concomitant]
     Indication: COUGH
     Dosage: 20 MILLIGRAM
     Route: 048
     Dates: start: 20180819, end: 20180828
  3. ALBUTEROL [SALBUTAMOL] [Concomitant]
     Active Substance: ALBUTEROL
     Indication: ASTHMA
     Dosage: 2.5 MILLIGRAM
     Route: 050
     Dates: start: 20180307, end: 20180307
  4. PREDNISOL [PREDNISOLONE SODIUM PHOSPHATE] [Concomitant]
     Indication: CHRONIC SINUSITIS
     Dosage: 10 MILLIGRAM
     Route: 048
     Dates: start: 20180914, end: 20180926
  5. OMEPRAZOLE. [Concomitant]
     Active Substance: OMEPRAZOLE
     Indication: BURN OESOPHAGEAL
     Dosage: 40 MILLIGRAM, QD
     Route: 048
     Dates: start: 20170424
  6. ZAVESCA [Suspect]
     Active Substance: MIGLUSTAT
     Indication: GAUCHER^S DISEASE
     Dosage: 100 MILLIGRAM, 3X/DAY:TID
     Route: 048
     Dates: start: 20190508, end: 20191101
  7. CARAFATE [Concomitant]
     Active Substance: SUCRALFATE
     Indication: BARRETT^S OESOPHAGUS
     Dosage: 10 MILLILITER, TID
     Route: 048
     Dates: start: 20170427, end: 20180310
  8. CHOLECALCIFEROL [Concomitant]
     Active Substance: CHOLECALCIFEROL
     Indication: SUPPLEMENTATION THERAPY
     Dosage: 2000 INTERNATIONAL UNIT, QD
     Route: 048
     Dates: start: 20180308, end: 20180308
  9. ADVAIR HFA [Concomitant]
     Active Substance: FLUTICASONE PROPIONATE\SALMETEROL XINAFOATE
     Indication: ASTHMA
     Dosage: 250?50 UGUNK
     Route: 055
     Dates: start: 20171230
  10. PULMICORT TURBUHALER [Concomitant]
     Active Substance: BUDESONIDE
     Indication: CHRONIC SINUSITIS
     Dosage: 0.5 MILLIGRAM, BID
     Route: 045
     Dates: start: 20180914
  11. FLONASE [MOMETASONE FUROATE] [Concomitant]
     Active Substance: MOMETASONE FUROATE
     Indication: CHRONIC SINUSITIS
     Dosage: 50 MICROGRAM, QD
     Route: 045
     Dates: start: 20090316
  12. LOVENOX [LEVOFLOXACIN] [Concomitant]
     Active Substance: LEVOFLOXACIN
     Indication: ATRIAL FLUTTER
     Dosage: 90 MILLIGRAM, QD
     Route: 058
     Dates: start: 20180126
  13. POLYTRIM [Concomitant]
     Active Substance: POLYMYXIN B SULFATE\TRIMETHOPRIM SULFATE
     Indication: CONJUNCTIVITIS
     Dosage: 1 DOSAGE FORM, QID
     Dates: start: 20180819, end: 20180826
  14. ZAVESCA [Suspect]
     Active Substance: MIGLUSTAT
     Dosage: 100 MILLIGRAM
     Route: 048
     Dates: start: 20190924
  15. PANTOPRAZOLE [Concomitant]
     Active Substance: PANTOPRAZOLE
     Indication: GASTROOESOPHAGEAL REFLUX DISEASE
     Dosage: 40 MILLIGRAM, QD
     Route: 042
     Dates: start: 20180307, end: 20180310
  16. NITROGLYCERIN. [Concomitant]
     Active Substance: NITROGLYCERIN
     Dosage: 2 UNK
     Route: 061
     Dates: start: 20180307, end: 20180308
  17. METRONIDAZOLE. [Concomitant]
     Active Substance: METRONIDAZOLE
     Indication: INFECTION
     Dosage: UNK UNK, TID
     Route: 042
     Dates: start: 20180308, end: 20180310
  18. LOSARTAN. [Concomitant]
     Active Substance: LOSARTAN
     Indication: CARDIOMYOPATHY
     Dosage: 50 MILLIGRAM, QD
     Route: 048
     Dates: start: 20180123
  19. CARVEDILOL. [Concomitant]
     Active Substance: CARVEDILOL
     Indication: CARDIOMYOPATHY
  20. ATORVASTATIN [Concomitant]
     Active Substance: ATORVASTATIN
     Indication: HYPERLIPIDAEMIA
     Dosage: 10 MILLIGRAM, QD
     Route: 048
     Dates: start: 20180802
  21. MONTELUCAST [Concomitant]
     Active Substance: MONTELUKAST SODIUM
     Indication: ASTHMA
     Dosage: 10 MILLIGRAM, QD
     Route: 048
  22. METOPROLOL TARTRATE. [Concomitant]
     Active Substance: METOPROLOL TARTRATE
     Indication: ATRIAL FLUTTER
     Dosage: 10 MILLIGRAM, QID
     Route: 042
     Dates: start: 20180308, end: 20180310
  23. ACETAMINOPHEN. [Concomitant]
     Active Substance: ACETAMINOPHEN
     Dosage: 750 UNK
     Route: 042
     Dates: start: 20180308, end: 20180308
  24. TROSPIUM [Concomitant]
     Active Substance: TROSPIUM
     Indication: HYPERTONIC BLADDER
     Dosage: 20 MILLIGRAM, QD
     Route: 048
     Dates: start: 20190305
  25. MAGNESIUM [Concomitant]
     Active Substance: MAGNESIUM
     Indication: BLOOD MAGNESIUM DECREASED
     Dosage: 4 GRAM
     Route: 042
     Dates: start: 20180309, end: 20180309
  26. AZITHROMYCIN ANHYDROUS. [Concomitant]
     Active Substance: AZITHROMYCIN ANHYDROUS
     Indication: PNEUMONIA
     Dosage: 500 MILLIGRAM
     Route: 048
     Dates: start: 20190206, end: 20190213
  27. VELAGLUCERASE ALFA [Suspect]
     Active Substance: VELAGLUCERASE ALFA
     Dosage: 60 INTERNATIONAL UNIT/KILOGRAM, 1X/2WKS
     Route: 065
     Dates: start: 20191203
  28. MAGNESIUM OXIDE. [Concomitant]
     Active Substance: MAGNESIUM OXIDE
     Indication: MAGNESIUM DEFICIENCY
  29. WARFARIN [Concomitant]
     Active Substance: WARFARIN
     Indication: ATRIAL FLUTTER
     Dosage: 2 MILLIGRAM
     Route: 048
     Dates: start: 20111008
  30. VELAGLUCERASE ALFA [Suspect]
     Active Substance: VELAGLUCERASE ALFA
     Indication: GAUCHER^S DISEASE
     Dosage: 60 INTERNATIONAL UNIT/KILOGRAM, 1X/2WKS
     Route: 065
     Dates: start: 20170728, end: 20190506
  31. VENTOLIN HFA [Concomitant]
     Active Substance: ALBUTEROL SULFATE
     Indication: ASTHMA
     Dosage: 90 MICROGRAM, PRN
     Route: 055
     Dates: start: 20110511
  32. VSL#3 [Concomitant]
     Active Substance: PROBIOTICS NOS
     Dosage: UNK UNK, QD
     Route: 048
     Dates: start: 20180310, end: 20180310
  33. ACETAMINOPHEN. [Concomitant]
     Active Substance: ACETAMINOPHEN
     Indication: PAIN
     Dosage: 1000 MILLIGRAM, QD
     Route: 042
     Dates: start: 20180308, end: 20180308
  34. ALPRAZOLAM. [Concomitant]
     Active Substance: ALPRAZOLAM
     Indication: ANXIETY
     Dosage: 0.5 MILLIGRAM, PRN
     Route: 048
     Dates: start: 20110613, end: 20180521
  35. BENZONATATE. [Concomitant]
     Active Substance: BENZONATATE
     Indication: COUGH
     Dosage: 100 MILLIGRAM, TID
     Route: 048
     Dates: start: 20180819, end: 20180921
  36. CEFTRIAXONE. [Concomitant]
     Active Substance: CEFTRIAXONE
     Indication: INFECTION
     Dosage: 1 GRAM, QD
     Route: 042
     Dates: start: 20180308, end: 20180310
  37. IPRATROPIUM [Concomitant]
     Active Substance: IPRATROPIUM
     Indication: DYSPNOEA
     Dosage: 0.02 INTERNATIONAL UNIT, PRN
     Dates: start: 20180307, end: 20180308
  38. FUROSEMIDE. [Concomitant]
     Active Substance: FUROSEMIDE
     Indication: CARDIAC FAILURE CONGESTIVE
     Dosage: 20 MILLIGRAM, QD
     Route: 042
     Dates: start: 20180307, end: 20180307
  39. CALCIUM CARBONATE. [Concomitant]
     Active Substance: CALCIUM CARBONATE
     Indication: GASTROOESOPHAGEAL REFLUX DISEASE
     Dosage: 500 MILLIGRAM, TID
     Route: 048
     Dates: start: 20110322
  40. VITAMIN D [VITAMIN D NOS] [Concomitant]
     Active Substance: VITAMIN D NOS
     Indication: SUPPLEMENTATION THERAPY
     Dosage: 200 INTERNATIONAL UNIT, QD
     Route: 048
     Dates: start: 20110322

REACTIONS (2)
  - Atrial flutter [Recovered/Resolved]
  - Tremor [Recovered/Resolved]

NARRATIVE: CASE EVENT DATE: 20190925
